FAERS Safety Report 6381968-3 (Version None)
Quarter: 2009Q3

REPORT INFORMATION
  Report Type: 
  Country: None (occurrence: None)
  Receive Date: 20090930
  Receipt Date: 20090921
  Transmission Date: 20100115
  Serious: Yes (Hospitalization)
  Sender: FDA-Public Use
  Company Number: US-AMGEN-QUU365541

PATIENT
  Sex: Female

DRUGS (1)
  1. ENBREL [Suspect]
     Indication: RHEUMATOID ARTHRITIS
     Route: 058

REACTIONS (11)
  - ARTHRALGIA [None]
  - BRONCHITIS [None]
  - CARPAL TUNNEL SYNDROME [None]
  - CONTUSION [None]
  - HEADACHE [None]
  - JOINT LOCK [None]
  - MUSCLE STRAIN [None]
  - MUSCULOSKELETAL PAIN [None]
  - NECK PAIN [None]
  - PAIN IN JAW [None]
  - ROTATOR CUFF REPAIR [None]
